FAERS Safety Report 16936334 (Version 1)
Quarter: 2019Q4

REPORT INFORMATION
  Report Type: Spontaneous
  Country: BR (occurrence: BR)
  Receive Date: 20191018
  Receipt Date: 20191018
  Transmission Date: 20200122
  Serious: Yes (Other)
  Sender: FDA-Public Use
  Company Number: BR-PFIZER INC-2019450107

PATIENT
  Age: 67 Year
  Sex: Male

DRUGS (2)
  1. CITALOR [Suspect]
     Active Substance: ATORVASTATIN
     Dosage: UNK
  2. OLMETEC HCT [Suspect]
     Active Substance: HYDROCHLOROTHIAZIDE\OLMESARTAN MEDOXOMIL
     Dosage: UNK (STRENGTH :20MG + 12.5MG )

REACTIONS (1)
  - Parkinson^s disease [Unknown]
